FAERS Safety Report 21768185 (Version 2)
Quarter: 2023Q1

REPORT INFORMATION
  Report Type: Spontaneous
  Country: JP (occurrence: JP)
  Receive Date: 20221222
  Receipt Date: 20230125
  Transmission Date: 20230417
  Serious: Yes (Hospitalization)
  Sender: FDA-Public Use
  Company Number: JP-VIATRISJAPAN-2022M1140417AA

PATIENT
  Age: 95 Year
  Sex: Female
  Weight: 40 kg

DRUGS (11)
  1. CELECOXIB [Suspect]
     Active Substance: CELECOXIB
     Indication: Product used for unknown indication
     Dosage: TWICE A DAY AFTER BREAKFAST AND DINNER
     Route: 048
  2. AMLODIPINE BESYLATE [Suspect]
     Active Substance: AMLODIPINE BESYLATE
     Indication: Product used for unknown indication
     Dosage: 10 MG TWICE DAILY AFTER BREAKFAST AND DINNER
     Route: 048
  3. AMLODIPINE BESYLATE [Suspect]
     Active Substance: AMLODIPINE BESYLATE
     Dosage: DOSE DECREASED
     Route: 048
  4. CARBIDOPA\LEVODOPA [Suspect]
     Active Substance: CARBIDOPA\LEVODOPA
     Indication: Product used for unknown indication
     Dosage: 2 TABLETS TWICE DAILY AFTER BREAKFAST AND DINNER
     Route: 048
  5. AMMONIUM GLYCYRRHIZATE [Suspect]
     Active Substance: AMMONIUM GLYCYRRHIZATE
     Indication: Product used for unknown indication
     Dosage: THREE TABLETS THREE TIMES A DAY AFTER BREAKFAST, LUNCH AND DINNER.
     Route: 048
  6. TIAPRIDE HYDROCHLORIDE [Suspect]
     Active Substance: TIAPRIDE HYDROCHLORIDE
     Indication: Product used for unknown indication
     Dosage: 75 MILLIGRAMS, 3 TIMES A DAY AFTER BREAKFAST, LUNCH AND DINNER.
     Route: 048
  7. SPIRONOLACTONE [Suspect]
     Active Substance: SPIRONOLACTONE
     Indication: Product used for unknown indication
     Dosage: 50 MILLIGRAMS ONCE A DAY AFTER BREAKFAST
     Route: 048
  8. SPIRONOLACTONE [Suspect]
     Active Substance: SPIRONOLACTONE
     Dosage: 25 MILLIGRAM, QD
     Route: 048
  9. DONEPEZIL HYDROCHLORIDE [Suspect]
     Active Substance: DONEPEZIL HYDROCHLORIDE
     Indication: Product used for unknown indication
     Dosage: 5 MILLIGRAMS ONCE A DAY AFTER BREAKFAST
     Route: 048
  10. RABEPRAZOLE SODIUM [Suspect]
     Active Substance: RABEPRAZOLE SODIUM
     Indication: Product used for unknown indication
     Dosage: 10 MILLIGRAMS ONCE A DAY AFTER BREAKFAST
     Route: 048
  11. RUPATADINE FUMARATE [Suspect]
     Active Substance: RUPATADINE FUMARATE
     Indication: Urticaria
     Dosage: 10 MILLIGRAMS ONCE A DAY BEFORE BEDTIME
     Route: 048

REACTIONS (2)
  - Chondrocalcinosis [Unknown]
  - Orthostatic hypotension [Recovering/Resolving]
